FAERS Safety Report 8531142-7 (Version None)
Quarter: 2012Q3

REPORT INFORMATION
  Report Type: 
  Country: None (occurrence: None)
  Receive Date: 20120723
  Receipt Date: 20120713
  Transmission Date: 20120928
  Serious: Yes (Hospitalization)
  Sender: FDA-Public Use
  Company Number: US-BAYER-2012-045467

PATIENT
  Age: 23 Year
  Sex: Female

DRUGS (2)
  1. BACTRIM [Concomitant]
     Dosage: UNK
     Route: 048
     Dates: start: 20100716
  2. YAZ [Suspect]

REACTIONS (1)
  - DEEP VEIN THROMBOSIS [None]
